FAERS Safety Report 9275862 (Version 1)
Quarter: 2013Q2

REPORT INFORMATION
  Report Type: Spontaneous
  Country: US (occurrence: US)
  Receive Date: 20130507
  Receipt Date: 20130507
  Transmission Date: 20140414
  Serious: Yes (Hospitalization, Other)
  Sender: FDA-Public Use
  Company Number: US-SANOFI-AVENTIS-2013SA045215

PATIENT
  Age: 70 Year
  Sex: Female

DRUGS (2)
  1. LANTUS SOLOSTAR [Suspect]
  2. SOLOSTAR [Suspect]

REACTIONS (4)
  - Cardiac disorder [Unknown]
  - Hepatic cancer [Unknown]
  - Throat cancer [Unknown]
  - Hypertension [Unknown]
